FAERS Safety Report 14556565 (Version 4)
Quarter: 2018Q2

REPORT INFORMATION
  Report Type: Report from Study
  Country: CA (occurrence: CA)
  Receive Date: 20180221
  Receipt Date: 20180628
  Transmission Date: 20180711
  Serious: Yes (Hospitalization)
  Sender: FDA-Public Use
  Company Number: CA-ROCHE-2072422

PATIENT
  Age: 71 Year
  Sex: Male

DRUGS (10)
  1. METAZAPINE (UNK INGREDIENTS) [Concomitant]
  2. COTELLIC [Suspect]
     Active Substance: COBIMETINIB
     Indication: METASTATIC MALIGNANT MELANOMA
     Dosage: ON 12/APR/2018, PHYSICIAN SENT BACK THE PRESCRIPTION WITH ORAL COBIMETINIB 20 MG ONCE A DAY FOR 3 WE
     Route: 048
     Dates: start: 20170522
  3. SENOKOT [Concomitant]
     Active Substance: SENNOSIDES
  4. LIPITOR [Concomitant]
     Active Substance: ATORVASTATIN CALCIUM
  5. COVERSYL [Concomitant]
     Active Substance: PERINDOPRIL
  6. ATORVASTATIN [Concomitant]
     Active Substance: ATORVASTATIN
  7. METFORMIN [Concomitant]
     Active Substance: METFORMIN HYDROCHLORIDE
  8. ZELBORAF [Suspect]
     Active Substance: VEMURAFENIB
     Indication: METASTATIC MALIGNANT MELANOMA
     Dosage: SUSPENSION
     Route: 048
     Dates: start: 20170522
  9. RANITIDINE. [Concomitant]
     Active Substance: RANITIDINE
  10. HYDROMORPHONE [Concomitant]
     Active Substance: HYDROMORPHONE

REACTIONS (2)
  - Myocardial infarction [Unknown]
  - Intercepted drug prescribing error [Unknown]

NARRATIVE: CASE EVENT DATE: 20180411
